FAERS Safety Report 4928486-4 (Version None)
Quarter: 2006Q1

REPORT INFORMATION
  Report Type: 
  Country: None (occurrence: None)
  Receive Date: 20060223
  Receipt Date: 20060213
  Transmission Date: 20060701
  Serious: Yes (Death)
  Sender: FDA-Public Use
  Company Number: 2006EU000415

PATIENT
  Sex: Female

DRUGS (3)
  1. PROGRAF [Suspect]
     Indication: LUNG TRANSPLANT
     Dosage: D
  2. AZATHIOPRINE [Suspect]
     Indication: LUNG TRANSPLANT
     Dosage: D
  3. PREDNISONE TAB [Suspect]
     Indication: LUNG TRANSPLANT
     Dosage: D

REACTIONS (10)
  - DISEASE RECURRENCE [None]
  - DRUG INTOLERANCE [None]
  - GASTROENTERITIS [None]
  - JAUNDICE [None]
  - LIVER DISORDER [None]
  - LUNG TRANSPLANT REJECTION [None]
  - PULMONARY TUBERCULOSIS [None]
  - RESPIRATORY FAILURE [None]
  - SKIN REACTION [None]
  - SUPERINFECTION LUNG [None]
